FAERS Safety Report 10269751 (Version 1)
Quarter: 2014Q2

REPORT INFORMATION
  Report Type: Spontaneous
  Country: US (occurrence: None)
  Receive Date: 20140627
  Receipt Date: 20140627
  Transmission Date: 20141212
  Serious: Yes (Death)
  Sender: FDA-Public Use
  Company Number: None

PATIENT
  Age: 90 Year
  Sex: Male
  Weight: 68.04 kg

DRUGS (1)
  1. LINZESS [Suspect]
     Indication: CONSTIPATION
     Dosage: 1 CAPSULE ONCE DAILY TAKEN BY MOUTH
     Route: 048
     Dates: start: 20140121, end: 20140222

REACTIONS (3)
  - Haemorrhage [None]
  - Cardiac arrest [None]
  - Pelvic fracture [None]
